FAERS Safety Report 8399917-5 (Version None)
Quarter: 2012Q2

REPORT INFORMATION
  Report Type: 
  Country: None (occurrence: None)
  Receive Date: 20120531
  Receipt Date: 20120523
  Transmission Date: 20120825
  Serious: Yes (Other)
  Sender: FDA-Public Use
  Company Number: JP-B.I. PHARMACEUTICALS,INC./RIDGEFIELD-2012-BP-09951NB

PATIENT
  Age: 80 Year
  Sex: Male

DRUGS (1)
  1. PRADAXA [Suspect]
     Dosage: 220 MG
     Route: 048
     Dates: start: 20120417

REACTIONS (3)
  - NEUROLEPTIC MALIGNANT SYNDROME [None]
  - WRONG TECHNIQUE IN DRUG USAGE PROCESS [None]
  - ACTIVATED PARTIAL THROMBOPLASTIN TIME PROLONGED [None]
